FAERS Safety Report 6932338-8 (Version None)
Quarter: 2010Q3

REPORT INFORMATION
  Report Type: 
  Country: None (occurrence: None)
  Receive Date: 20100819
  Receipt Date: 20100803
  Transmission Date: 20110219
  Serious: Yes (Hospitalization)
  Sender: FDA-Public Use
  Company Number: US-BAYER-201013589NA

PATIENT
  Age: 26 Year
  Sex: Female
  Weight: 100 kg

DRUGS (6)
  1. YASMIN [Suspect]
     Indication: POLYCYSTIC OVARIES
     Dosage: SAMPLES RECEIVED IN 2000-2006.
     Route: 048
     Dates: start: 20030101, end: 20080201
  2. LEXAPRO [Concomitant]
     Route: 065
  3. SEROQUEL [Concomitant]
     Route: 065
  4. TOPAMAX [Concomitant]
     Route: 065
  5. FLUOXETINE [Concomitant]
     Route: 065
  6. RAMIPRIL [Concomitant]
     Route: 065
     Dates: start: 20080201, end: 20080701

REACTIONS (4)
  - ACUTE MYOCARDIAL INFARCTION [None]
  - BUNDLE BRANCH BLOCK RIGHT [None]
  - CHEST PAIN [None]
  - GALLBLADDER DISORDER [None]
